FAERS Safety Report 18181934 (Version 1)
Quarter: 2020Q3

REPORT INFORMATION
  Report Type: Spontaneous
  Country: JP (occurrence: JP)
  Receive Date: 20200821
  Receipt Date: 20200821
  Transmission Date: 20201103
  Serious: Yes (Hospitalization)
  Sender: FDA-Public Use
  Company Number: JP-DSJP-DSJ-2020-123180

PATIENT

DRUGS (3)
  1. MOHRUS [Concomitant]
     Active Substance: KETOPROFEN
     Dosage: UNK
     Route: 065
  2. LIXIANA TABLETS [Suspect]
     Active Substance: EDOXABAN TOSYLATE
     Indication: PRODUCT USED FOR UNKNOWN INDICATION
     Dosage: UNK
     Route: 065
  3. BAYASPIRIN [Concomitant]
     Active Substance: ASPIRIN
     Dosage: UNK
     Route: 065

REACTIONS (2)
  - Large intestinal haemorrhage [Unknown]
  - Diarrhoea [Unknown]
